FAERS Safety Report 19285590 (Version 3)
Quarter: 2021Q2

REPORT INFORMATION
  Report Type: Report from Study
  Country: US (occurrence: US)
  Receive Date: 20210521
  Receipt Date: 20210618
  Transmission Date: 20210717
  Serious: Yes (Hospitalization, Other)
  Sender: FDA-Public Use
  Company Number: US-PFIZER INC-2021523639

PATIENT
  Age: 57 Year
  Sex: Male
  Weight: 95.24 kg

DRUGS (28)
  1. MEDROL [Suspect]
     Active Substance: METHYLPREDNISOLONE
     Indication: SYSTEMIC LUPUS ERYTHEMATOSUS
     Dosage: 16 MG, QD (EVERY EVENING), ORAL)
     Route: 048
  2. ORENITRAM [Suspect]
     Active Substance: TREPROSTINIL
     Dosage: 0.25 MG
  3. ORENITRAM [Suspect]
     Active Substance: TREPROSTINIL
     Dosage: 2.875 MG, 3X/DAY
     Route: 048
  4. PLAQUENIL [Concomitant]
     Active Substance: HYDROXYCHLOROQUINE SULFATE
     Dosage: 200 MG
     Dates: start: 20170906
  5. REVATIO [Concomitant]
     Active Substance: SILDENAFIL CITRATE
     Dosage: 20 MG
  6. TOZINAMERAN. [Suspect]
     Active Substance: TOZINAMERAN
     Indication: COVID-19 IMMUNISATION
     Dosage: 1ST DOSE, SINGLE
     Dates: start: 20210224, end: 20210224
  7. ORENITRAM [Suspect]
     Active Substance: TREPROSTINIL
     Indication: PULMONARY ARTERIAL HYPERTENSION
     Dosage: UNK
     Route: 048
     Dates: start: 20190801
  8. ORENITRAM [Suspect]
     Active Substance: TREPROSTINIL
     Dosage: 0.125 MG
     Route: 048
  9. LANOXIN [Concomitant]
     Active Substance: DIGOXIN
     Dosage: 0.125 MG
  10. ORENITRAM [Suspect]
     Active Substance: TREPROSTINIL
     Dosage: 0.125 MG
     Route: 048
  11. LETAIRIS [Concomitant]
     Active Substance: AMBRISENTAN
     Dosage: 10 MG
  12. LEXAPRO [Concomitant]
     Active Substance: ESCITALOPRAM OXALATE
     Dosage: 5 MG
  13. PEPCID [Concomitant]
     Active Substance: FAMOTIDINE
     Dosage: 20 MG
     Dates: end: 202104
  14. METHOTREXATE SODIUM. [Concomitant]
     Active Substance: METHOTREXATE SODIUM
     Dosage: UNK
  15. ORENITRAM [Suspect]
     Active Substance: TREPROSTINIL
     Dosage: 1 MG
     Route: 048
  16. ELIQUIS [Concomitant]
     Active Substance: APIXABAN
     Dosage: UNK
  17. ZOLPIDEM TARTRATE. [Concomitant]
     Active Substance: ZOLPIDEM TARTRATE
     Dosage: UNK
  18. ALDACTONE [Concomitant]
     Active Substance: SPIRONOLACTONE
     Dosage: 25 MG
     Dates: end: 202104
  19. ERGOCALCIFEROL. [Concomitant]
     Active Substance: ERGOCALCIFEROL
     Dosage: UNK
  20. NIFEDIPINE. [Suspect]
     Active Substance: NIFEDIPINE
     Indication: HYPERTENSION
     Dosage: UNK
  21. EPIPEN [Concomitant]
     Active Substance: EPINEPHRINE
     Dosage: UNK
  22. FOLVITE [FOLIC ACID] [Concomitant]
     Dosage: 1 MG
  23. LASIX [Concomitant]
     Active Substance: FUROSEMIDE
     Dosage: 20 MG
     Dates: end: 202104
  24. PLAQUENIL [Concomitant]
     Active Substance: HYDROXYCHLOROQUINE SULFATE
     Dosage: 200 MG
  25. LACTOBACILLUS ACIDOPHILUS [Concomitant]
     Active Substance: LACTOBACILLUS ACIDOPHILUS
     Dosage: UNK
  26. ORENITRAM [Suspect]
     Active Substance: TREPROSTINIL
     Dosage: 3.875 MG, 3X/DAY
     Route: 048
     Dates: start: 20190801
  27. ORENITRAM [Suspect]
     Active Substance: TREPROSTINIL
     Dosage: 3 MG, 3X/DAY
     Route: 048
  28. CITRACAL + D [CALCIUM CITRATE;COLECALCIFEROL] [Concomitant]
     Active Substance: CALCIUM CITRATE\CHOLECALCIFEROL
     Dosage: UNK (315?250 MG)

REACTIONS (18)
  - COVID-19 pneumonia [Unknown]
  - Fluid overload [Unknown]
  - Mitral valve incompetence [Unknown]
  - Rash [Recovering/Resolving]
  - Diarrhoea [Recovered/Resolved]
  - Drug ineffective [Unknown]
  - Polyuria [Unknown]
  - Oedema peripheral [Unknown]
  - Blister [Recovering/Resolving]
  - COVID-19 [Unknown]
  - Condition aggravated [Unknown]
  - Pulmonary arterial hypertension [Unknown]
  - Acute respiratory failure [Unknown]
  - Steroid diabetes [Unknown]
  - Influenza [Unknown]
  - Systemic lupus erythematosus [Unknown]
  - Pyrexia [Recovered/Resolved]
  - Weight fluctuation [Unknown]

NARRATIVE: CASE EVENT DATE: 20210323
